FAERS Safety Report 5340095-4 (Version None)
Quarter: 2007Q2

REPORT INFORMATION
  Report Type: 
  Country: None (occurrence: None)
  Receive Date: 20070525
  Receipt Date: 20070525
  Transmission Date: 20071010
  Serious: Yes (Hospitalization)
  Sender: FDA-Public Use
  Company Number: None

PATIENT
  Age: 81 Year
  Sex: Male
  Weight: 59.8748 kg

DRUGS (13)
  1. WARFARIN SODIUM [Suspect]
     Indication: AORTIC VALVE REPLACEMENT
     Dosage: 5MG ALT 2.5MG DAILY PO
     Route: 048
  2. ASPIRIN [Suspect]
     Dosage: 81MG DAILY PO
     Route: 048
  3. ASPIRIN [Concomitant]
  4. EXELON [Concomitant]
  5. SINEMET [Concomitant]
  6. COMTAN [Concomitant]
  7. SONATA [Concomitant]
  8. TOPROL-XL [Concomitant]
  9. TYLENOL [Concomitant]
  10. ZOLOFT [Concomitant]
  11. SEROQUEL [Concomitant]
  12. ATIVAN [Concomitant]
  13. NANENDA [Concomitant]

REACTIONS (2)
  - DIVERTICULUM INTESTINAL HAEMORRHAGIC [None]
  - INTERNATIONAL NORMALISED RATIO INCREASED [None]
